FAERS Safety Report 24560863 (Version 4)
Quarter: 2024Q4

REPORT INFORMATION
  Report Type: Spontaneous
  Country: IT (occurrence: IT)
  Receive Date: 20241029
  Receipt Date: 20241121
  Transmission Date: 20250114
  Serious: Yes (Death, Other)
  Sender: PFIZER
  Company Number: IT-ROCHE-3562087

PATIENT
  Age: 71 Year
  Sex: Male
  Weight: 80 kg

DRUGS (9)
  1. BEVACIZUMAB [Suspect]
     Active Substance: BEVACIZUMAB
     Indication: Hepatocellular carcinoma
     Dosage: 1200 MG, EVERY 3 WEEKS;DOSE LAST STUDY DRUG ADMIN PRIOR AE
     Route: 042
     Dates: start: 20240417
  2. ATEZOLIZUMAB [Suspect]
     Active Substance: ATEZOLIZUMAB
     Indication: Hepatocellular carcinoma
     Dosage: 1200 MG, EVERY 3 WEEKS; DOSE LAST STUDY DRUG ADMIN PRIOR TO AE
     Route: 042
     Dates: start: 20240417
  3. TIRAGOLUMAB [Suspect]
     Active Substance: TIRAGOLUMAB
     Indication: Hepatocellular carcinoma
     Dosage: UNK, EVERY 3 WEEKS
     Route: 042
     Dates: start: 20240417
  4. CARVEDILOL [Concomitant]
     Active Substance: CARVEDILOL
     Indication: Prophylaxis
     Dosage: 6.25 MG, 1X/DAY
     Route: 048
     Dates: start: 20240312
  5. DIOSMIN [Concomitant]
     Active Substance: DIOSMIN
     Indication: Haemorrhoidal haemorrhage
     Dosage: 450 MG; FREQ: 0.5 DAY
     Route: 048
     Dates: start: 20240407, end: 20240409
  6. ESOXX ONE [Concomitant]
     Indication: Gastrooesophageal reflux disease
     Dosage: 1 DF; FREQ: 0.33 D ; MEDICATION DOSE: 1 GRAIN
     Route: 048
     Dates: start: 20240220
  7. HESPERIDIN [Concomitant]
     Active Substance: HESPERIDIN
     Indication: Haemorrhoidal haemorrhage
     Dosage: 50 MG, FREQ:0.5 DAY
     Route: 048
     Dates: start: 20240407, end: 20240409
  8. HERBALS\SAW PALMETTO [Concomitant]
     Active Substance: HERBALS\SAW PALMETTO
     Indication: Benign prostatic hyperplasia
     Dosage: 320 MG, 1X/DAY
     Route: 048
     Dates: start: 2020, end: 20240826
  9. PROCTOLYN [Concomitant]
     Indication: Haemorrhoidal haemorrhage
     Dosage: FREQ: 0.5 DAY
     Route: 054
     Dates: start: 20240407, end: 20240409

REACTIONS (3)
  - Death [Fatal]
  - Hypertension [Recovered/Resolved]
  - Off label use [Unknown]

NARRATIVE: CASE EVENT DATE: 20240417
